FAERS Safety Report 6209443-7 (Version None)
Quarter: 2009Q2

REPORT INFORMATION
  Report Type: 
  Country: None (occurrence: None)
  Receive Date: 20090601
  Receipt Date: 20090518
  Transmission Date: 20091009
  Serious: Yes (Other)
  Sender: FDA-Public Use
  Company Number: BR-ROCHE-633900

PATIENT
  Sex: Male
  Weight: 65 kg

DRUGS (1)
  1. ROACUTAN [Suspect]
     Indication: ACNE
     Route: 048
     Dates: start: 20090516, end: 20090517

REACTIONS (5)
  - BODY TEMPERATURE DECREASED [None]
  - DISORIENTATION [None]
  - MUSCULOSKELETAL DISORDER [None]
  - PALLOR [None]
  - SYNCOPE [None]
